FAERS Safety Report 6348152-0 (Version None)
Quarter: 2009Q3

REPORT INFORMATION
  Report Type: 
  Country: None (occurrence: None)
  Receive Date: 20090908
  Receipt Date: 20090821
  Transmission Date: 20100115
  Serious: Yes (Hospitalization, Other)
  Sender: FDA-Public Use
  Company Number: 2006BI000705

PATIENT
  Age: 40 Year
  Sex: Male

DRUGS (6)
  1. ZEVALIN [Suspect]
     Indication: CENTRAL NERVOUS SYSTEM LYMPHOMA
     Dosage: 1X;IV
     Route: 042
     Dates: start: 20051101, end: 20051101
  2. RITUXIMAB [Concomitant]
  3. DEXAMETHASONE [Concomitant]
  4. MACROGOL [Concomitant]
  5. LAMICTAL [Concomitant]
  6. CHEMOTHERAPY (NOS) [Concomitant]

REACTIONS (9)
  - CENTRAL NERVOUS SYSTEM LYMPHOMA [None]
  - DISEASE PROGRESSION [None]
  - GANGRENE [None]
  - HAEMATOTOXICITY [None]
  - LEUKOPENIA [None]
  - NAIL DISORDER [None]
  - STOMATITIS [None]
  - THROMBOANGIITIS OBLITERANS [None]
  - THROMBOCYTOPENIA [None]
